FAERS Safety Report 7266892-6 (Version None)
Quarter: 2011Q1

REPORT INFORMATION
  Report Type: 
  Country: None (occurrence: None)
  Receive Date: 20110201
  Receipt Date: 20110125
  Transmission Date: 20110831
  Serious: Yes (Death, Hospitalization)
  Sender: FDA-Public Use
  Company Number: US-ELI_LILLY_AND_COMPANY-US201101006203

PATIENT
  Age: 30 Year
  Sex: Female

DRUGS (3)
  1. SERTRALINE [Concomitant]
  2. ZYPREXA RELPREVV [Suspect]
     Dosage: 405 MG, UNKNOWN
     Dates: start: 20101219
  3. LITHIUM [Concomitant]

REACTIONS (5)
  - MEDICATION ERROR [None]
  - DEATH [None]
  - OVERDOSE [None]
  - LOSS OF CONSCIOUSNESS [None]
  - MECHANICAL VENTILATION [None]
